FAERS Safety Report 9898730 (Version 2)
Quarter: 2014Q1

REPORT INFORMATION
  Report Type: Spontaneous
  Country: US (occurrence: US)
  Receive Date: 20140214
  Receipt Date: 20140214
  Transmission Date: 20141002
  Serious: No
  Sender: FDA-Public Use
  Company Number: US-GILEAD-E2B_00001326

PATIENT
  Age: 61 Year
  Sex: Female
  Weight: 66.4 kg

DRUGS (17)
  1. LETAIRIS [Suspect]
     Indication: PULMONARY ARTERIAL HYPERTENSION
     Dosage: 10 MG, QD
     Route: 048
  2. LETAIRIS [Suspect]
     Dosage: 10MG PER DAY
     Route: 048
  3. FLOLAN [Suspect]
     Indication: PULMONARY ARTERIAL HYPERTENSION
     Dosage: 26NGKM CONTINUOUS
     Route: 042
     Dates: start: 20081210
  4. FLOLAN [Suspect]
     Indication: PULMONARY ARTERIAL HYPERTENSION
     Dosage: 30NGKM CONTINUOUS
     Route: 042
     Dates: start: 20081210
  5. REVATIO [Concomitant]
     Dosage: 20MG THREE TIMES PER DAY
  6. REVATIO [Concomitant]
     Dosage: 20MG THREE TIMES PER DAY
  7. FUROSEMIDE [Concomitant]
     Dosage: 40MG PER DAY
  8. FUROSEMIDE [Concomitant]
     Dosage: 40MG PER DAY
  9. POTASSIUM CHLORIDE [Concomitant]
     Dosage: 20MEQ TWICE PER DAY
  10. POTASSIUM CHLORIDE [Concomitant]
     Dosage: 20MEQ TWICE PER DAY
  11. SPIRONOLACTONE [Concomitant]
     Dosage: 25MG PER DAY
  12. SPIRONOLACTONE [Concomitant]
     Dosage: 25MG PER DAY
  13. OXYGEN [Concomitant]
  14. OMEPRAZOLE [Concomitant]
     Dosage: 20MG TWICE PER DAY
  15. OMEPRAZOLE [Concomitant]
     Dosage: 20MG TWICE PER DAY
  16. DIPHENHYDRAMINE [Concomitant]
     Dosage: 25MG THREE TIMES PER DAY
  17. DIPHENHYDRAMINE [Concomitant]
     Dosage: 25MG THREE TIMES PER DAY

REACTIONS (7)
  - Eye pain [Unknown]
  - Ocular hyperaemia [Unknown]
  - Diarrhoea [Unknown]
  - Dyspnoea [Not Recovered/Not Resolved]
  - Fatigue [Not Recovered/Not Resolved]
  - Oedema peripheral [Unknown]
  - Flushing [Unknown]
